FAERS Safety Report 9573658 (Version 1)
Quarter: 2013Q4

REPORT INFORMATION
  Report Type: Spontaneous
  Country: US (occurrence: US)
  Receive Date: 20131001
  Receipt Date: 20131001
  Transmission Date: 20140711
  Serious: No
  Sender: FDA-Public Use
  Company Number: US-PURDUE-USA-2012-0082830

PATIENT
  Age: 60 Year
  Sex: Male

DRUGS (1)
  1. BUTRANS [Suspect]
     Indication: PAIN
     Dosage: 20 MCG/HR, EVERY 7 DAYS
     Route: 062
     Dates: start: 20110320

REACTIONS (1)
  - Application site erythema [Not Recovered/Not Resolved]
